FAERS Safety Report 8116499-3 (Version None)
Quarter: 2012Q1

REPORT INFORMATION
  Report Type: 
  Country: None (occurrence: None)
  Receive Date: 20120206
  Receipt Date: 20120120
  Transmission Date: 20120608
  Serious: Yes (Hospitalization)
  Sender: FDA-Public Use
  Company Number: US-BAYER-2011-050082

PATIENT
  Age: 18 Year
  Sex: Female
  Weight: 117.91 kg

DRUGS (2)
  1. YASMIN [Suspect]
     Indication: ACNE
     Dosage: UNK
     Dates: start: 20070513
  2. YASMIN [Suspect]
     Indication: PREMENSTRUAL SYNDROME

REACTIONS (2)
  - PULMONARY EMBOLISM [None]
  - PAIN [None]
